FAERS Safety Report 15782523 (Version 2)
Quarter: 2019Q1

REPORT INFORMATION
  Report Type: Spontaneous
  Country: JP (occurrence: JP)
  Receive Date: 20190102
  Receipt Date: 20190213
  Transmission Date: 20190417
  Serious: Yes (Disabling, Other)
  Sender: FDA-Public Use
  Company Number: JP-PFIZER INC-2018514820

PATIENT
  Age: 65 Year
  Sex: Male

DRUGS (3)
  1. REMIFENTANIL HYDROCHLORIDE. [Suspect]
     Active Substance: REMIFENTANIL HYDROCHLORIDE
     Indication: GENERAL ANAESTHESIA
     Dosage: 5 ML, UNK
     Route: 042
     Dates: start: 20181128, end: 20181128
  2. PRECEDEX [Suspect]
     Active Substance: DEXMEDETOMIDINE HYDROCHLORIDE
     Indication: GENERAL ANAESTHESIA
     Dosage: 6 MCG/KG/HR
     Route: 042
     Dates: start: 20181128, end: 20181128
  3. FENTANYL CITRATE. [Concomitant]
     Active Substance: FENTANYL CITRATE
     Indication: GENERAL ANAESTHESIA
     Dosage: 0.1 MG, DAILY
     Route: 042
     Dates: start: 20181128, end: 20181128

REACTIONS (7)
  - Hypotension [Unknown]
  - Musculoskeletal stiffness [Recovering/Resolving]
  - Nausea [Unknown]
  - Feeling abnormal [Unknown]
  - Somnolence [Unknown]
  - Procedural complication [Unknown]
  - Hypopnoea [Recovered/Resolved]

NARRATIVE: CASE EVENT DATE: 2018
